FAERS Safety Report 5828409-X (Version None)
Quarter: 2008Q3

REPORT INFORMATION
  Report Type: 
  Country: None (occurrence: None)
  Receive Date: 20080731
  Receipt Date: 20080729
  Transmission Date: 20090109
  Serious: Yes (Other)
  Sender: FDA-Public Use
  Company Number: HQWYE396305DEC06

PATIENT
  Sex: Male
  Weight: 75 kg

DRUGS (6)
  1. SIROLIMUS [Suspect]
     Indication: PROPHYLAXIS AGAINST TRANSPLANT REJECTION
     Dosage: 2 MG/FREQUENCY NOT PROVIDED
     Route: 048
     Dates: start: 20040414, end: 20080422
  2. BOI K [Concomitant]
     Dosage: DOSE NOT PROVIDED
     Route: 048
  3. TEBETANE COMPUESTO [Concomitant]
     Indication: PROSTATISM
     Route: 048
     Dates: start: 20050416, end: 20070401
  4. METFORMIN HCL [Concomitant]
     Indication: DIABETES MELLITUS
     Dosage: DOSE AND FREQUENCY NOT PROVIDED
     Route: 048
     Dates: start: 20061116
  5. ALLOPURINOL [Concomitant]
     Indication: HYPERURICAEMIA
     Route: 048
     Dates: start: 20050216
  6. INDAPAMIDE [Concomitant]
     Indication: HYPERTENSION
     Route: 048
     Dates: start: 20060221

REACTIONS (1)
  - PROSTATE CANCER [None]
